FAERS Safety Report 17491483 (Version 2)
Quarter: 2020Q3

REPORT INFORMATION
  Report Type: Report from Study
  Country: US (occurrence: US)
  Receive Date: 20200303
  Receipt Date: 20200717
  Transmission Date: 20201102
  Serious: Yes (Death, Hospitalization)
  Sender: FDA-Public Use
  Company Number: US-ACTELION-A-NJ2018-179456

PATIENT
  Age: 38 Year
  Sex: Female

DRUGS (3)
  1. OPSUMIT [Suspect]
     Active Substance: MACITENTAN
     Indication: PULMONARY ARTERIAL HYPERTENSION
     Dosage: 10 MG, QD
     Route: 048
     Dates: start: 20180717, end: 20200223
  2. SILDENAFIL. [Suspect]
     Active Substance: SILDENAFIL
     Indication: PULMONARY ARTERIAL HYPERTENSION
     Dosage: 20 MG, TID
     Route: 065
     Dates: start: 20181123, end: 20181127
  3. VELETRI [Suspect]
     Active Substance: EPOPROSTENOL
     Indication: PULMONARY ARTERIAL HYPERTENSION
     Dosage: 20 NG/KG, PER MIN
     Route: 042
     Dates: start: 20180525, end: 20200223

REACTIONS (14)
  - Decreased appetite [Recovered/Resolved]
  - Headache [Recovered/Resolved]
  - Chest pain [Recovered/Resolved]
  - Pain in jaw [Recovering/Resolving]
  - Right ventricular failure [Fatal]
  - Pulmonary arterial hypertension [Fatal]
  - Arthralgia [Recovering/Resolving]
  - Eye swelling [Recovering/Resolving]
  - Myocardial infarction [Fatal]
  - Diarrhoea [Recovered/Resolved]
  - Flushing [Recovered/Resolved]
  - Nodule [Unknown]
  - Alopecia [Not Recovered/Not Resolved]
  - Pain in extremity [Unknown]

NARRATIVE: CASE EVENT DATE: 201809
